FAERS Safety Report 25681299 (Version 1)
Quarter: 2025Q3

REPORT INFORMATION
  Report Type: Spontaneous
  Country: US (occurrence: US)
  Receive Date: 20250814
  Receipt Date: 20250814
  Transmission Date: 20251021
  Serious: No
  Sender: INSYS
  Company Number: US-INSYS Therapeutics, Inc-INS201605-BEN202410-000008

PATIENT
  Sex: Male
  Weight: 56.69 kg

DRUGS (1)
  1. SYNDROS [Suspect]
     Active Substance: DRONABINOL
     Indication: Product used for unknown indication

REACTIONS (2)
  - Weight decreased [Unknown]
  - Product availability issue [Unknown]
